FAERS Safety Report 11024684 (Version 1)
Quarter: 2015Q2

REPORT INFORMATION
  Report Type: Spontaneous
  Country: US (occurrence: US)
  Receive Date: 20150414
  Receipt Date: 20150414
  Transmission Date: 20150821
  Serious: Yes (Other)
  Sender: FDA-Public Use
  Company Number: US-PFIZER INC-2015117670

PATIENT
  Age: 58 Year
  Sex: Female
  Weight: 117.69 kg

DRUGS (5)
  1. AMLODIPINE BESILATE [Suspect]
     Active Substance: AMLODIPINE BESYLATE
     Indication: VASOSPASM
  2. AMLODIPINE BESILATE [Suspect]
     Active Substance: AMLODIPINE BESYLATE
     Indication: HYPERTENSION
     Dosage: 2.5 MG, AS NEEDED
     Route: 048
     Dates: start: 201409
  3. LIOTHYRONINE SODIUM. [Concomitant]
     Active Substance: LIOTHYRONINE SODIUM
     Dosage: 5 MG, UNK (ONE AND ONE HALF EVERYDAY IN MORNING)
  4. LEVOTHYROXINE [Concomitant]
     Active Substance: LEVOTHYROXINE
     Dosage: 75MG, HALF OF TABLET DAILY IN MORNING
  5. AMLODIPINE BESILATE [Suspect]
     Active Substance: AMLODIPINE BESYLATE
     Indication: HYPOTENSION

REACTIONS (3)
  - Transient ischaemic attack [Unknown]
  - Visual impairment [Unknown]
  - Migraine [Unknown]

NARRATIVE: CASE EVENT DATE: 20150326
